FAERS Safety Report 12566913 (Version 1)
Quarter: 2016Q3

REPORT INFORMATION
  Report Type: Spontaneous
  Country: US (occurrence: US)
  Receive Date: 20160718
  Receipt Date: 20160718
  Transmission Date: 20161109
  Serious: Yes (Other)
  Sender: FDA-Public Use
  Company Number: US-TEVA-677154USA

PATIENT
  Age: 73 Year
  Sex: Male

DRUGS (4)
  1. VEPESID [Suspect]
     Active Substance: ETOPOSIDE
     Indication: EXTRAGONADAL PRIMARY GERM CELL TUMOUR
     Dosage: 80MG/M2 ON DAYS 1-5
     Route: 065
  2. CISPLATIN. [Suspect]
     Active Substance: CISPLATIN
     Indication: EXTRAGONADAL PRIMARY GERM CELL TUMOUR
     Dosage: 20MG/M2 ON DAYS 1-5
     Route: 065
  3. IFOSFAMIDE. [Suspect]
     Active Substance: IFOSFAMIDE
     Indication: EXTRAGONADAL PRIMARY GERM CELL TUMOUR
     Dosage: 1200MG/M2 ON DAYS 1-5
     Route: 065
  4. MESNA. [Concomitant]
     Active Substance: MESNA
     Dosage: 120MG/M2
     Route: 065

REACTIONS (4)
  - Haemothorax [Unknown]
  - Sepsis [Unknown]
  - Pancytopenia [Unknown]
  - Multiple organ dysfunction syndrome [Unknown]
